FAERS Safety Report 9848494 (Version 1)
Quarter: 2014Q1

REPORT INFORMATION
  Report Type: Spontaneous
  Country: US (occurrence: None)
  Receive Date: 20140127
  Receipt Date: 20140127
  Transmission Date: 20141002
  Serious: Yes (Hospitalization)
  Sender: FDA-Public Use
  Company Number: None

PATIENT
  Age: 76 Year
  Sex: Male
  Weight: 156.9 kg

DRUGS (2)
  1. XARELTO 20 MG [Suspect]
     Indication: ATRIAL FIBRILLATION
     Dosage: 20 MG EVERY EVENING ORALLY
     Route: 048
  2. XARELTO 20 MG [Suspect]
     Indication: CEREBROVASCULAR ACCIDENT PROPHYLAXIS
     Dosage: 20 MG EVERY EVENING ORALLY
     Route: 048

REACTIONS (4)
  - Headache [None]
  - Eye pain [None]
  - Confusional state [None]
  - Intraventricular haemorrhage [None]
